FAERS Safety Report 6276672-6 (Version None)
Quarter: 2009Q3

REPORT INFORMATION
  Report Type: 
  Country: None (occurrence: None)
  Receive Date: 20090722
  Receipt Date: 20080709
  Transmission Date: 20100115
  Serious: No
  Sender: FDA-Public Use
  Company Number: US-BRISTOL-MYERS SQUIBB COMPANY-14255194

PATIENT
  Age: 81 Year
  Sex: Female
  Weight: 59 kg

DRUGS (7)
  1. COUMADIN [Suspect]
     Indication: CARDIAC FAILURE CONGESTIVE
     Dosage: RECEIVED INITIALLY FOR 10 YEARS,AND THEN RESTARTED
  2. WARFARIN SODIUM [Suspect]
  3. SPIRONOLACTONE [Concomitant]
  4. LASIX [Concomitant]
  5. COREG [Concomitant]
  6. QUINAPRIL [Concomitant]
  7. DIGOXIN [Concomitant]

REACTIONS (5)
  - BLUE TOE SYNDROME [None]
  - LOCAL SWELLING [None]
  - NECK PAIN [None]
  - PARAESTHESIA [None]
  - SKIN DISCOLOURATION [None]
